FAERS Safety Report 24407303 (Version 2)
Quarter: 2025Q1

REPORT INFORMATION
  Report Type: Spontaneous
  Country: US (occurrence: US)
  Receive Date: 20241007
  Receipt Date: 20250122
  Transmission Date: 20250409
  Serious: No
  Sender: SANOFI AVENTIS
  Company Number: US-SA-2024SA284812

PATIENT
  Age: 62 Year
  Sex: Female

DRUGS (2)
  1. DUPIXENT [Suspect]
     Active Substance: DUPILUMAB
     Indication: Dermatitis atopic
     Dosage: 300 MG, QOW
     Route: 058
     Dates: start: 202408
  2. DUPIXENT [Suspect]
     Active Substance: DUPILUMAB
     Indication: Eczema

REACTIONS (4)
  - Upper respiratory tract infection [Unknown]
  - Sinusitis [Unknown]
  - Arthralgia [Unknown]
  - Injection site pain [Not Recovered/Not Resolved]

NARRATIVE: CASE EVENT DATE: 20240920
